FAERS Safety Report 14857660 (Version 1)
Quarter: 2018Q2

REPORT INFORMATION
  Report Type: Spontaneous
  Country: US (occurrence: US)
  Receive Date: 20180508
  Receipt Date: 20180508
  Transmission Date: 20180711
  Serious: No
  Sender: FDA-Public Use
  Company Number: US-RADIUS HEALTH INC.-2018US000263

PATIENT
  Age: 80 Year
  Sex: Female

DRUGS (2)
  1. TYMLOS [Suspect]
     Active Substance: ABALOPARATIDE
     Indication: OSTEOPOROSIS POSTMENOPAUSAL
     Dosage: 80 MCG; ONCE DAILY
     Route: 058
     Dates: start: 20180125, end: 20180222
  2. TYMLOS [Suspect]
     Active Substance: ABALOPARATIDE
     Dosage: 80 MCG; ONCE DAILY
     Route: 058
     Dates: end: 20180411

REACTIONS (10)
  - Dizziness [Unknown]
  - Vertigo [Not Recovered/Not Resolved]
  - Oedema peripheral [Unknown]
  - Balance disorder [Unknown]
  - Nausea [Unknown]
  - Malaise [Unknown]
  - Bone pain [Unknown]
  - Vomiting [Unknown]
  - Headache [Unknown]
  - Dizziness [Unknown]

NARRATIVE: CASE EVENT DATE: 20180325
